FAERS Safety Report 16305520 (Version 1)
Quarter: 2019Q2

REPORT INFORMATION
  Report Type: Spontaneous
  Country: SI (occurrence: SI)
  Receive Date: 20190513
  Receipt Date: 20190513
  Transmission Date: 20190711
  Serious: Yes (Hospitalization)
  Sender: FDA-Public Use
  Company Number: SI-JNJFOC-20190509958

PATIENT
  Age: 56 Year
  Sex: Female

DRUGS (2)
  1. ALOPURINOL [Concomitant]
     Active Substance: ALLOPURINOL
     Route: 065
  2. IMBRUVICA [Suspect]
     Active Substance: IBRUTINIB
     Indication: CHRONIC LYMPHOCYTIC LEUKAEMIA
     Route: 048
     Dates: start: 20150105, end: 20190507

REACTIONS (1)
  - Facial paresis [Unknown]

NARRATIVE: CASE EVENT DATE: 20190507
